FAERS Safety Report 9056122 (Version 2)
Quarter: 2013Q4

REPORT INFORMATION
  Report Type: Spontaneous
  Country: US (occurrence: US)
  Receive Date: 20130205
  Receipt Date: 20131023
  Transmission Date: 20140711
  Serious: Yes (Other)
  Sender: FDA-Public Use
  Company Number: US-BAYER-2013-014348

PATIENT
  Age: 25 Year
  Sex: Female
  Weight: 86.17 kg

DRUGS (5)
  1. MIRENA [Suspect]
     Indication: CONTRACEPTION
     Dosage: 20 MCG/24HR, CONT
     Route: 015
     Dates: start: 20100324, end: 20110408
  2. DOXYCYCLINE [Concomitant]
  3. PYRIDIUM [Concomitant]
  4. MOTRIN [Concomitant]
     Indication: PAIN
  5. VICODIN [Concomitant]

REACTIONS (8)
  - Medical device complication [None]
  - Injury [None]
  - Pain [None]
  - Device dislocation [None]
  - Depression [None]
  - Anxiety [None]
  - Dysmenorrhoea [None]
  - Menorrhagia [None]
